FAERS Safety Report 25172476 (Version 1)
Quarter: 2025Q2

REPORT INFORMATION
  Report Type: Spontaneous
  Country: GB (occurrence: GB)
  Receive Date: 20250408
  Receipt Date: 20250408
  Transmission Date: 20250716
  Serious: Yes (Hospitalization)
  Sender: MYLAN
  Company Number: GB-MYLANLABS-2025M1028558

PATIENT
  Sex: Male

DRUGS (1)
  1. TOBI PODHALER [Suspect]
     Active Substance: TOBRAMYCIN
     Indication: Cystic fibrosis
     Dosage: 4 DOSAGE FORM, BID (4 CAPSULES (28MG)TWICE A DAY (4 CAPSULES MORNING 4 CAPSULES IN THE EVENING)

REACTIONS (2)
  - Hospitalisation [Unknown]
  - Off label use [Unknown]
